FAERS Safety Report 24651667 (Version 3)
Quarter: 2025Q1

REPORT INFORMATION
  Report Type: Spontaneous
  Country: JP (occurrence: JP)
  Receive Date: 20241122
  Receipt Date: 20250107
  Transmission Date: 20250409
  Serious: Yes (Hospitalization, Other)
  Sender: BRISTOL-MYERS SQUIBB COMPANY
  Company Number: JP-ONO-2024JP020190

PATIENT
  Age: 65 Year
  Sex: Female

DRUGS (2)
  1. OPDIVO [Suspect]
     Active Substance: NIVOLUMAB
     Indication: Oesophageal carcinoma
     Route: 041
     Dates: start: 20240902
  2. OPDIVO [Suspect]
     Active Substance: NIVOLUMAB
     Route: 041
     Dates: start: 20241028

REACTIONS (4)
  - Immune-mediated arthritis [Recovered/Resolved]
  - Arthralgia [Recovered/Resolved]
  - Pyrexia [Unknown]
  - Immune-mediated pancreatitis [Recovered/Resolved]

NARRATIVE: CASE EVENT DATE: 20240911
